FAERS Safety Report 21055658 (Version 1)
Quarter: 2022Q3

REPORT INFORMATION
  Report Type: Spontaneous
  Country: ES (occurrence: ES)
  Receive Date: 20220708
  Receipt Date: 20220708
  Transmission Date: 20221027
  Serious: Yes (Hospitalization)
  Sender: FDA-Public Use
  Company Number: None

PATIENT
  Age: 99 Year
  Sex: Female

DRUGS (4)
  1. FENTANYL [Suspect]
     Active Substance: FENTANYL
     Indication: Pain
     Dosage: 1.0 PATCH EVERY 72 HOURS, FENTANILO 75 MICROGRAMS/H TRANSDERMAL PATCH
     Route: 050
     Dates: start: 20210311, end: 20210316
  2. FUROSEMIDE KERN PHARMA [Concomitant]
     Indication: Cardiac failure
     Dosage: 40 MG EFG TABLETS, 30 TABLETS?40.0 MG DECO
  3. EFFERALGAN [Concomitant]
     Active Substance: ACETAMINOPHEN
     Indication: Osteoarthritis
     Dosage: 1.0 G DECE, EFFERALGAN 1 G EFFERVESCENT TABLETS, 40 TABLETS
     Route: 048
     Dates: start: 20080512
  4. DIAZEPAN PRODES [Concomitant]
     Indication: Persistent depressive disorder
     Dosage: 2.5 MG A-DE, 2.5 MG TABLETS, 40 TABLETS
     Route: 048
     Dates: start: 20080512

REACTIONS (1)
  - Hypersomnia [Recovered/Resolved]

NARRATIVE: CASE EVENT DATE: 20210316
